FAERS Safety Report 8189154-1 (Version None)
Quarter: 2012Q1

REPORT INFORMATION
  Report Type: 
  Country: None (occurrence: None)
  Receive Date: 20120306
  Receipt Date: 20120306
  Transmission Date: 20120608
  Serious: No
  Sender: FDA-Public Use
  Company Number: None

PATIENT
  Sex: Female
  Weight: 77.1115 kg

DRUGS (4)
  1. SERTRALINE HYDROCHLORIDE [Suspect]
     Indication: DEPRESSION
     Dosage: 50MG 1-A-DAY MOUTH
     Route: 048
     Dates: start: 20100101
  2. SERTRALINE HYDROCHLORIDE [Suspect]
     Indication: DEPRESSION
     Dosage: 50MG 1-A-DAY MOUTH
     Route: 048
     Dates: start: 20090101
  3. SERTRALINE HYDROCHLORIDE [Suspect]
     Indication: DEPRESSION
     Dosage: 50MG 1-A-DAY MOUTH
     Route: 048
     Dates: start: 20110101
  4. CITALOPRAM HYDROBROMIDE [Suspect]
     Indication: DEPRESSION
     Dosage: 20 MG 1-A-DAY MOUTH
     Route: 048
     Dates: start: 20090101

REACTIONS (5)
  - DRY MOUTH [None]
  - DRY EYE [None]
  - HYPERHIDROSIS [None]
  - VISION BLURRED [None]
  - PRURITUS [None]
